FAERS Safety Report 4672787-4 (Version None)
Quarter: 2005Q2

REPORT INFORMATION
  Report Type: 
  Country: None (occurrence: None)
  Receive Date: 20050523
  Receipt Date: 20050518
  Transmission Date: 20051028
  Serious: Yes (Hospitalization)
  Sender: FDA-Public Use
  Company Number: GBWYE608122APR05

PATIENT
  Age: 38 Year
  Sex: Female

DRUGS (1)
  1. EFFEXOR [Suspect]
     Dosage: OVERDOSE
     Dates: start: 20050420, end: 20050420

REACTIONS (4)
  - ALCOHOL INTERACTION [None]
  - GRAND MAL CONVULSION [None]
  - INTENTIONAL MISUSE [None]
  - SUICIDE ATTEMPT [None]
